FAERS Safety Report 7753187-7 (Version None)
Quarter: 2011Q3

REPORT INFORMATION
  Report Type: 
  Country: None (occurrence: None)
  Receive Date: 20110915
  Receipt Date: 20110902
  Transmission Date: 20111222
  Serious: Yes (Other)
  Sender: FDA-Public Use
  Company Number: PHHY2011BR45014

PATIENT
  Age: 29 Year
  Sex: Female

DRUGS (3)
  1. GLEEVEC [Suspect]
     Dosage: UNK
     Route: 048
     Dates: start: 20110701
  2. CONTRACEPTIVES NOS [Concomitant]
     Dosage: UNK
  3. GLEEVEC [Suspect]
     Indication: CHRONIC MYELOID LEUKAEMIA
     Dosage: 400 MG, BID
     Route: 048

REACTIONS (8)
  - FATIGUE [None]
  - PAIN IN EXTREMITY [None]
  - HYPOTHYROIDISM [None]
  - ALOPECIA [None]
  - DIARRHOEA [None]
  - NO THERAPEUTIC RESPONSE [None]
  - PRURITUS [None]
  - SOMNOLENCE [None]
